FAERS Safety Report 5567838-9 (Version None)
Quarter: 2007Q4

REPORT INFORMATION
  Report Type: 
  Country: None (occurrence: None)
  Receive Date: 20071220
  Receipt Date: 20071217
  Transmission Date: 20080405
  Serious: Yes (Other)
  Sender: FDA-Public Use
  Company Number: PHMT2007CA01353

PATIENT
  Sex: Female

DRUGS (1)
  1. DIOVAN [Suspect]
     Dosage: UNK, UNK
     Dates: start: 20061201

REACTIONS (4)
  - LIP SWELLING [None]
  - OEDEMA PERIPHERAL [None]
  - PRURITUS [None]
  - SWOLLEN TONGUE [None]
